FAERS Safety Report 9434535 (Version 1)
Quarter: 2013Q3

REPORT INFORMATION
  Report Type: Spontaneous
  Country: US (occurrence: US)
  Receive Date: 20130801
  Receipt Date: 20130801
  Transmission Date: 20140515
  Serious: No
  Sender: FDA-Public Use
  Company Number: US-PFIZER INC-2013222981

PATIENT
  Age: 64 Year
  Sex: Male
  Weight: 95.24 kg

DRUGS (6)
  1. NEURONTIN [Suspect]
     Indication: DIABETIC NEUROPATHY
     Dosage: 400MGAM, 400MGPM, 800MGNIGHT
     Route: 048
  2. PLAVIX [Concomitant]
     Dosage: 75 MG, 1X/DAY
  3. LISINOPRIL [Concomitant]
     Dosage: 10 MG, 1X/DAY
  4. LASIX [Concomitant]
     Dosage: UNK, 1X/DAY
  5. METFORMIN [Concomitant]
     Indication: DIABETES MELLITUS
     Dosage: UNK
  6. GEMFIBROZIL [Concomitant]
     Dosage: 600 MG, 2X/DAY

REACTIONS (4)
  - Off label use [Unknown]
  - Amnesia [Unknown]
  - Agitation [Unknown]
  - Confusional state [Unknown]
